FAERS Safety Report 9734316 (Version 2)
Quarter: 2013Q4

REPORT INFORMATION
  Report Type: Report from Study
  Country: BR (occurrence: BR)
  Receive Date: 20131206
  Receipt Date: 20131206
  Transmission Date: 20140711
  Serious: Yes (Hospitalization)
  Sender: FDA-Public Use
  Company Number: BR-ROCHE-1146815

PATIENT
  Age: 36 Year
  Sex: Female
  Weight: 82 kg

DRUGS (10)
  1. MABTHERA [Suspect]
     Indication: RHEUMATOID ARTHRITIS
     Dosage: DATE OF MOST RECENT DOSE : MAY/2013
     Route: 042
  2. PREDNISONE [Concomitant]
     Route: 065
  3. SULFASALAZINE [Concomitant]
     Route: 065
  4. FLUOXETINE [Concomitant]
     Route: 065
  5. CARBAMAZEPINE [Concomitant]
     Route: 065
  6. ATENOLOL [Concomitant]
     Route: 065
  7. LOSARTAN [Concomitant]
     Route: 065
  8. OMEPRAZOLE [Concomitant]
  9. NEUTROFER [Concomitant]
     Route: 065
  10. CYCLOBENZAPRINE [Concomitant]

REACTIONS (3)
  - Nephrolithiasis [Not Recovered/Not Resolved]
  - Dizziness [Unknown]
  - Urinary tract infection [Recovered/Resolved]
